FAERS Safety Report 6296778-5 (Version None)
Quarter: 2009Q3

REPORT INFORMATION
  Report Type: 
  Country: None (occurrence: None)
  Receive Date: 20090724
  Receipt Date: 20090428
  Transmission Date: 20100115
  Serious: Yes (Other)
  Sender: FDA-Public Use
  Company Number: 2009BI013033

PATIENT
  Age: 25 Year
  Sex: Female

DRUGS (5)
  1. TYSABRI [Suspect]
     Indication: MULTIPLE SCLEROSIS
     Dosage: 300 MG;QM;IV
     Route: 042
     Dates: start: 20080708
  2. PERCOCET [Concomitant]
  3. MORPHINE [Concomitant]
  4. TORADOL [Concomitant]
  5. IBUPROFEN [Concomitant]

REACTIONS (5)
  - ANXIETY [None]
  - FATIGUE [None]
  - HEADACHE [None]
  - HYPERSENSITIVITY [None]
  - SENSORY DISTURBANCE [None]
